FAERS Safety Report 5880470-2 (Version None)
Quarter: 2008Q3

REPORT INFORMATION
  Report Type: 
  Country: None (occurrence: None)
  Receive Date: 20080912
  Receipt Date: 20080605
  Transmission Date: 20090109
  Serious: No
  Sender: FDA-Public Use
  Company Number: US-ABBOTT-08P-163-0451998-00

PATIENT
  Sex: Female
  Weight: 52.664 kg

DRUGS (9)
  1. HUMIRA [Suspect]
     Indication: CROHN'S DISEASE
     Route: 058
     Dates: start: 20071001
  2. HUMIRA [Suspect]
     Route: 058
  3. AZATHIOPRINE [Concomitant]
     Indication: CROHN'S DISEASE
     Dosage: 100 MG DAILY
     Route: 048
  4. OMEPRAZOLE [Concomitant]
     Indication: GASTROOESOPHAGEAL REFLUX DISEASE
     Route: 048
     Dates: start: 20080301
  5. OMEPRAZOLE [Concomitant]
     Indication: CROHN'S DISEASE
  6. SERTRALINE [Concomitant]
     Indication: ANXIETY
     Dosage: 50 MG DAILY
     Route: 048
     Dates: start: 20070301
  7. SERTRALINE [Concomitant]
     Indication: DEPRESSION
  8. MULTI-VITAMIN [Concomitant]
     Indication: VITAMIN SUPPLEMENTATION
     Dosage: DAILY
     Route: 048
  9. CYANOCOBALAMIN-TANNIN COMPLEX [Concomitant]
     Indication: CROHN'S DISEASE
     Route: 030

REACTIONS (3)
  - DIARRHOEA [None]
  - DRUG INEFFECTIVE [None]
  - NAUSEA [None]
